FAERS Safety Report 7216364-X (Version None)
Quarter: 2011Q1

REPORT INFORMATION
  Report Type: 
  Country: None (occurrence: None)
  Receive Date: 20110107
  Receipt Date: 20101229
  Transmission Date: 20110831
  Serious: Yes (Other)
  Sender: FDA-Public Use
  Company Number: US-PFIZER INC-2010181501

PATIENT
  Sex: Female
  Weight: 96.145 kg

DRUGS (6)
  1. LEVOXYL [Concomitant]
     Indication: THYROID DISORDER
     Dosage: UNK
  2. NEURONTIN [Suspect]
     Indication: PAIN
     Dosage: UNK
  3. LASIX [Concomitant]
     Indication: FLUID RETENTION
     Dosage: UNK
  4. ENOXAPARIN SODIUM [Concomitant]
     Indication: ANTICOAGULANT THERAPY
     Dosage: UNK
  5. REVATIO [Suspect]
     Indication: DYSPNOEA
     Dosage: 20 MG, 3X/DAY
     Route: 048
     Dates: start: 20101113
  6. REVATIO [Suspect]
     Indication: PULMONARY ARTERIAL HYPERTENSION

REACTIONS (8)
  - BEDRIDDEN [None]
  - BLOOD GLUCOSE INCREASED [None]
  - PROTEIN TOTAL DECREASED [None]
  - SLEEP TALKING [None]
  - HALLUCINATION [None]
  - SKIN EXFOLIATION [None]
  - PAIN IN EXTREMITY [None]
  - HAEMOGLOBIN DECREASED [None]
